FAERS Safety Report 5862041-7 (Version None)
Quarter: 2008Q3

REPORT INFORMATION
  Report Type: 
  Country: None (occurrence: None)
  Receive Date: 20080826
  Receipt Date: 20080808
  Transmission Date: 20090109
  Serious: Yes (Other)
  Sender: FDA-Public Use
  Company Number: GXKR2008DE07459

PATIENT

DRUGS (1)
  1. TRAMADOL HCL [Suspect]
     Dosage: 100 MG/ML, ORAL
     Route: 048

REACTIONS (2)
  - INTENTIONAL DRUG MISUSE [None]
  - MEDICATION TAMPERING [None]
